FAERS Safety Report 7025564-3 (Version None)
Quarter: 2010Q4

REPORT INFORMATION
  Report Type: 
  Country: None (occurrence: None)
  Receive Date: 20101003
  Receipt Date: 20100924
  Transmission Date: 20110411
  Serious: Yes (Hospitalization)
  Sender: FDA-Public Use
  Company Number: PHHY2010US64266

PATIENT
  Sex: Female
  Weight: 80 kg

DRUGS (1)
  1. RECLAST [Suspect]
     Indication: OSTEOPOROSIS
     Dosage: 5 MG
     Route: 042
     Dates: start: 20071101

REACTIONS (3)
  - CHEST PAIN [None]
  - DIZZINESS [None]
  - HEART RATE ABNORMAL [None]
